FAERS Safety Report 16123595 (Version 1)
Quarter: 2019Q1

REPORT INFORMATION
  Report Type: Spontaneous
  Country: CN (occurrence: CN)
  Receive Date: 20190327
  Receipt Date: 20190327
  Transmission Date: 20190418
  Serious: Yes (Other)
  Sender: FDA-Public Use
  Company Number: CN-PFIZER INC-2019128863

PATIENT
  Age: 56 Year
  Sex: Male
  Weight: 55 kg

DRUGS (2)
  1. SOLU-MEDROL [Suspect]
     Active Substance: METHYLPREDNISOLONE SODIUM SUCCINATE
     Indication: INFLAMMATION
     Dosage: 40 MG, 1X/DAY
     Route: 041
     Dates: start: 20181229, end: 20190102
  2. SODIUM CHLORIDE. [Concomitant]
     Active Substance: SODIUM CHLORIDE
     Indication: INFLAMMATION
     Dosage: 100 ML, 1X/DAY
     Route: 041
     Dates: start: 20181229, end: 20190102

REACTIONS (1)
  - Hypokalaemic syndrome [Recovered/Resolved]

NARRATIVE: CASE EVENT DATE: 20190102
